FAERS Safety Report 8888437 (Version 2)
Quarter: 2013Q2

REPORT INFORMATION
  Report Type: Spontaneous
  Country: FR (occurrence: FR)
  Receive Date: 20121106
  Receipt Date: 20130506
  Transmission Date: 20140414
  Serious: Yes (Other)
  Sender: FDA-Public Use
  Company Number: PHHY2012FR100645

PATIENT
  Age: 55 Year
  Sex: Female

DRUGS (1)
  1. LETROZOLE [Suspect]
     Indication: OESTROGEN RECEPTOR POSITIVE BREAST CANCER

REACTIONS (1)
  - Hepatotoxicity [Unknown]
